FAERS Safety Report 25411439 (Version 1)
Quarter: 2025Q2

REPORT INFORMATION
  Report Type: Spontaneous
  Country: KR (occurrence: KR)
  Receive Date: 20250609
  Receipt Date: 20250609
  Transmission Date: 20250717
  Serious: Yes (Other)
  Sender: SANOFI AVENTIS
  Company Number: KR-SANOFI-02541051

PATIENT
  Age: 64 Year
  Sex: Male

DRUGS (1)
  1. APIDRA [Suspect]
     Active Substance: INSULIN GLULISINE
     Indication: Diabetes mellitus
     Dosage: TID

REACTIONS (2)
  - Diabetes mellitus inadequate control [Unknown]
  - Chemotherapy [Unknown]

NARRATIVE: CASE EVENT DATE: 20241201
